FAERS Safety Report 6014720-9 (Version None)
Quarter: 2008Q4

REPORT INFORMATION
  Report Type: 
  Country: None (occurrence: None)
  Receive Date: 20081219
  Receipt Date: 20081210
  Transmission Date: 20090506
  Serious: Yes (Other)
  Sender: FDA-Public Use
  Company Number: JP-PFIZER INC-2008153450

PATIENT

DRUGS (14)
  1. HYDROCORTISONE AND HYDROCORTISONE ACETATE AND HYDROCORTISONE CIPIONATE [Suspect]
     Indication: INTRAOPERATIVE CARE
     Dosage: 200 MG, UNK
  2. HYDROCORTISONE AND HYDROCORTISONE ACETATE AND HYDROCORTISONE CIPIONATE [Suspect]
     Indication: POSTOPERATIVE CARE
  3. FENTANYL CITRATE [Suspect]
  4. MIDAZOLAM HCL [Suspect]
  5. LIDOCAINE 2% [Suspect]
  6. ATROPINE [Suspect]
  7. EPHEDRIN [Suspect]
  8. THIAMYLAL [Concomitant]
  9. VECURONIUM [Concomitant]
  10. SEVOFLURANE [Concomitant]
  11. ROPIVACAINE [Concomitant]
  12. EPINEPHRINE [Concomitant]
  13. CEFAZOLIN [Concomitant]
  14. LOXOPROFEN [Concomitant]

REACTIONS (1)
  - HALLUCINATION, VISUAL [None]
